FAERS Safety Report 6400190-5 (Version None)
Quarter: 2009Q4

REPORT INFORMATION
  Report Type: 
  Country: None (occurrence: None)
  Receive Date: 20091014
  Receipt Date: 20091007
  Transmission Date: 20100525
  Serious: Yes (Other)
  Sender: FDA-Public Use
  Company Number: JP-JNJFOC-20091001320

PATIENT
  Age: 70 Year
  Sex: Female

DRUGS (3)
  1. ITRIZOLE [Suspect]
     Indication: ORAL CANDIDIASIS
     Route: 048
     Dates: start: 20090928, end: 20090929
  2. BENZETHONIUM CHLORIDE [Concomitant]
     Route: 049
     Dates: start: 20090916
  3. DIBASIC POTASSIUM PHOSPHATE INORGANIC SALTS COMBINED DRUG [Concomitant]
     Route: 048
     Dates: start: 20090916

REACTIONS (4)
  - FACE OEDEMA [None]
  - GENERALISED OEDEMA [None]
  - HOT FLUSH [None]
  - PRURITUS GENERALISED [None]
